FAERS Safety Report 5498081-X (Version None)
Quarter: 2007Q4

REPORT INFORMATION
  Report Type: 
  Country: None (occurrence: None)
  Receive Date: 20071025
  Receipt Date: 20071015
  Transmission Date: 20080405
  Serious: Yes (Hospitalization)
  Sender: FDA-Public Use
  Company Number: US-PFIZER INC-2007086935

PATIENT
  Sex: Female

DRUGS (2)
  1. XANAX [Suspect]
  2. COMMIT [Interacting]
     Indication: SMOKING CESSATION THERAPY

REACTIONS (2)
  - DISORIENTATION [None]
  - DRUG INTERACTION [None]
